FAERS Safety Report 10366607 (Version 1)
Quarter: 2014Q3

REPORT INFORMATION
  Report Type: Spontaneous
  Country: FR (occurrence: None)
  Receive Date: 20140804
  Receipt Date: 20140804
  Transmission Date: 20150326
  Serious: Yes (Life-Threatening)
  Sender: FDA-Public Use
  Company Number: FK201403017

PATIENT
  Age: 53 Year
  Sex: Male

DRUGS (4)
  1. PROPOFOL. [Suspect]
     Active Substance: PROPOFOL
     Indication: INDUCTION OF ANAESTHESIA
     Dosage: 200MG, 1 IN 1D, INTRAVENOUS
     Route: 042
     Dates: start: 20140618, end: 20140618
  2. NIMBEX (NIMESULIDE) [Suspect]
     Active Substance: NIMESULIDE
     Indication: INDUCTION OF ANAESTHESIA
     Dosage: 10MG, 1 IN 1D INTERVENOUS
     Route: 042
     Dates: start: 20140618, end: 20140618
  3. SUFENTANIL CITRATE. [Suspect]
     Active Substance: SUFENTANIL CITRATE
     Indication: INDUCTION OF ANAESTHESIA
     Dates: start: 20140618, end: 20140618
  4. ROPIVACAINE HYDROCHLORIDE [Suspect]
     Active Substance: ROPIVACAINE HYDROCHLORIDE
     Indication: ANALGESIC THERAPY
     Dosage: 20MG, 1 IN 1D, INTRAVENOUS
     Route: 042
     Dates: start: 20140618, end: 20140618

REACTIONS (1)
  - Anaphylactic shock [None]

NARRATIVE: CASE EVENT DATE: 20140618
